FAERS Safety Report 12162108 (Version 1)
Quarter: 2016Q1

REPORT INFORMATION
  Report Type: Spontaneous
  Country: US (occurrence: None)
  Receive Date: 20160308
  Receipt Date: 20160308
  Transmission Date: 20160526
  Serious: Yes (Hospitalization)
  Sender: FDA-Public Use
  Company Number: None

PATIENT
  Age: 80 Year
  Sex: Female
  Weight: 68 kg

DRUGS (17)
  1. VOLTAREN [Concomitant]
     Active Substance: DICLOFENAC SODIUM
  2. ADVAIR DISKUS [Concomitant]
     Active Substance: FLUTICASONE PROPIONATE\SALMETEROL XINAFOATE
  3. MICROZIDE [Concomitant]
     Active Substance: HYDROCHLOROTHIAZIDE
  4. DUONES [Concomitant]
  5. NEXIUM [Suspect]
     Active Substance: ESOMEPRAZOLE MAGNESIUM
  6. NASONEX [Concomitant]
     Active Substance: MOMETASONE FUROATE
  7. MVI [Concomitant]
     Active Substance: VITAMINS
  8. NORCO [Suspect]
     Active Substance: ACETAMINOPHEN\HYDROCODONE BITARTRATE
     Indication: BACK PAIN
     Dosage: 10/325MG Q8HR PRN PO
     Route: 048
  9. BENADRYL [Concomitant]
     Active Substance: DIPHENHYDRAMINE HYDROCHLORIDE
  10. FIBERCON [Concomitant]
     Active Substance: CALCIUM POLYCARBOPHIL
  11. SYNTHROID [Concomitant]
     Active Substance: LEVOTHYROXINE SODIUM
  12. FLEXERIL [Concomitant]
     Active Substance: CYCLOBENZAPRINE HYDROCHLORIDE
  13. AZELASTINE [Concomitant]
     Active Substance: AZELASTINE
  14. CELEBREX [Concomitant]
     Active Substance: CELECOXIB
  15. LOPRESSOR [Concomitant]
     Active Substance: METOPROLOL TARTRATE
  16. TRAZODONE [Concomitant]
     Active Substance: TRAZODONE HYDROCHLORIDE
  17. DURAGESIC [Suspect]
     Active Substance: FENTANYL
     Indication: BACK PAIN
     Dosage: 50MCG Q72HRS TRANSDERMAL
     Route: 062

REACTIONS (3)
  - Urinary tract infection [None]
  - Encephalopathy [None]
  - Unevaluable event [None]

NARRATIVE: CASE EVENT DATE: 20150817
